FAERS Safety Report 5196464-9 (Version None)
Quarter: 2006Q4

REPORT INFORMATION
  Report Type: 
  Country: None (occurrence: None)
  Receive Date: 20061227
  Receipt Date: 20061219
  Transmission Date: 20070319
  Serious: Yes (Hospitalization)
  Sender: FDA-Public Use
  Company Number: SPV1-2006-01569

PATIENT
  Age: 31 Year
  Sex: Female

DRUGS (1)
  1. PENTASA [Suspect]
     Indication: COLITIS ULCERATIVE
     Dosage: 4 G DAILY,

REACTIONS (2)
  - ANTINUCLEAR ANTIBODY POSITIVE [None]
  - CRYPTOGENIC ORGANISING PNEUMONIA [None]
